FAERS Safety Report 4279084-X (Version None)
Quarter: 2004Q1

REPORT INFORMATION
  Report Type: 
  Country: None (occurrence: None)
  Receive Date: 20040126
  Receipt Date: 20031103
  Transmission Date: 20041129
  Serious: Yes (Other)
  Sender: FDA-Public Use
  Company Number: WAES 0311USA00183

PATIENT
  Age: 67 Year
  Sex: Male
  Weight: 102 kg

DRUGS (5)
  1. ASPIRIN [Concomitant]
     Indication: CORONARY ARTERY DISEASE
     Route: 048
  2. PRINIVIL [Suspect]
     Indication: CORONARY ARTERY DISEASE
     Route: 048
     Dates: start: 20030531, end: 20030801
  3. METOPROLOL [Concomitant]
     Indication: CORONARY ARTERY DISEASE
     Route: 048
  4. VIAGRA [Concomitant]
  5. ZOCOR [Concomitant]
     Indication: CORONARY ARTERY DISEASE
     Route: 048

REACTIONS (4)
  - DENTAL EXAMINATION ABNORMAL [None]
  - TOOTH ABSCESS [None]
  - TOOTH INJURY [None]
  - TOOTH RESORPTION [None]
